FAERS Safety Report 24082996 (Version 1)
Quarter: 2024Q3

REPORT INFORMATION
  Report Type: Spontaneous
  Country: CN (occurrence: CN)
  Receive Date: 20240712
  Receipt Date: 20240712
  Transmission Date: 20241016
  Serious: Yes (Other)
  Sender: NOVAST
  Company Number: CN-NOVAST LABORATORIES INC.-2024NOV000271

PATIENT

DRUGS (5)
  1. METOPROLOL SUCCINATE [Suspect]
     Active Substance: METOPROLOL SUCCINATE
     Indication: Tachycardia
     Dosage: 50 MILLIGRAM, QD
     Route: 048
     Dates: start: 20240617, end: 20240618
  2. RISPERIDONE [Suspect]
     Active Substance: RISPERIDONE
     Indication: Psychotic symptom
     Dosage: UNK
     Route: 048
     Dates: start: 20240605, end: 20240610
  3. RISPERIDONE [Suspect]
     Active Substance: RISPERIDONE
     Dosage: 4 MILLIGRAM, QD
     Route: 048
     Dates: start: 20240611, end: 20240618
  4. VALPROATE SODIUM [Concomitant]
     Active Substance: VALPROATE SODIUM
     Indication: Psychotic symptom
     Dosage: 250MG/0.5 DAY
     Route: 048
     Dates: start: 20240607, end: 20240630
  5. TRAZODONE HYDROCHLORIDE [Concomitant]
     Active Substance: TRAZODONE HYDROCHLORIDE
     Indication: Psychotic symptom
     Dosage: 50MG/1 DAY
     Route: 048
     Dates: start: 20240613, end: 20240701

REACTIONS (2)
  - Shock [Recovered/Resolved]
  - Product use in unapproved indication [Unknown]

NARRATIVE: CASE EVENT DATE: 20240618
